FAERS Safety Report 4449902-0 (Version None)
Quarter: 2004Q3

REPORT INFORMATION
  Report Type: 
  Country: None (occurrence: None)
  Receive Date: 20040915
  Receipt Date: 20040910
  Transmission Date: 20050211
  Serious: Yes (Life-Threatening, Disabling, Other)
  Sender: FDA-Public Use
  Company Number: 200416860US

PATIENT
  Sex: Male
  Weight: 99.5 kg

DRUGS (9)
  1. LANTUS [Suspect]
     Dosage: DOSE UNIT: UNITS
     Route: 058
     Dates: start: 20020307
  2. ROSIGLITAZONE [Suspect]
     Route: 048
     Dates: start: 20011231
  3. INSULIN ASPART [Suspect]
     Dosage: DOSE UNIT: UNITS
     Route: 048
     Dates: start: 20020605
  4. GEMFIBROZIL [Concomitant]
  5. LASIX [Concomitant]
  6. LISINOPRIL [Concomitant]
  7. DIGOXIN [Concomitant]
  8. CARVEDILOL [Concomitant]
  9. WARFARIN SODIUM [Concomitant]

REACTIONS (5)
  - CARDIAC FAILURE CONGESTIVE [None]
  - OEDEMA PERIPHERAL [None]
  - PLEURAL EFFUSION [None]
  - SLEEP DISORDER [None]
  - WEIGHT INCREASED [None]
